FAERS Safety Report 20327285 (Version 1)
Quarter: 2022Q1

REPORT INFORMATION
  Report Type: Spontaneous
  Country: US (occurrence: None)
  Receive Date: 20220112
  Receipt Date: 20220112
  Transmission Date: 20220423
  Serious: No
  Sender: FDA-Public Use
  Company Number: None

PATIENT
  Age: 54 Year
  Sex: Male
  Weight: 109 kg

DRUGS (1)
  1. HYDROCHLOROTHIAZIDE [Suspect]
     Active Substance: HYDROCHLOROTHIAZIDE
     Indication: Hypertension
     Dosage: OTHER FREQUENCY : AM;?
     Route: 048

REACTIONS (7)
  - Dizziness [None]
  - Nausea [None]
  - Vomiting [None]
  - Hypotension [None]
  - Acute kidney injury [None]
  - Hyponatraemia [None]
  - Dehydration [None]

NARRATIVE: CASE EVENT DATE: 20210910
